FAERS Safety Report 7486500-9 (Version None)
Quarter: 2011Q2

REPORT INFORMATION
  Report Type: 
  Country: None (occurrence: None)
  Receive Date: 20110517
  Receipt Date: 20100518
  Transmission Date: 20111010
  Serious: No
  Sender: FDA-Public Use
  Company Number: US-NOVEN-ALL1-2010-02887

PATIENT

DRUGS (6)
  1. INTUNIV [Concomitant]
     Dosage: 2 MG, 1X/DAY:QD
     Route: 048
     Dates: start: 20100501
  2. VITAMINS, OTHER COMBINATIONS [Concomitant]
     Dosage: UNK, 1X/DAY:QD
     Route: 048
  3. DAYTRANA [Suspect]
     Dosage: 30 MG, 1X/DAY:QD
     Route: 062
     Dates: start: 20100505
  4. DAYTRANA [Suspect]
     Dosage: UNK, 1X/DAY:QD ADMINISTERED ONE 20 MG AND HALF OF A CUT 20 MG PATCH
     Route: 062
     Dates: start: 20100515, end: 20100516
  5. INTUNIV [Concomitant]
     Dosage: 1 MG, 1X/DAY:QD
     Route: 048
     Dates: start: 20100501, end: 20100501
  6. DAYTRANA [Suspect]
     Dosage: 20 MG, 1X/DAY:QD
     Route: 062
     Dates: start: 20100423, end: 20100504

REACTIONS (6)
  - DECREASED APPETITE [None]
  - SUNBURN [None]
  - APPLICATION SITE ERYTHEMA [None]
  - APPLICATION SITE PRURITUS [None]
  - PRURITUS GENERALISED [None]
  - WRONG TECHNIQUE IN DRUG USAGE PROCESS [None]
